FAERS Safety Report 10692589 (Version 1)
Quarter: 2015Q1

REPORT INFORMATION
  Report Type: Spontaneous
  Country: US (occurrence: None)
  Receive Date: 20150105
  Receipt Date: 20150105
  Transmission Date: 20150720
  Serious: Yes (Hospitalization)
  Sender: FDA-Public Use
  Company Number: None

PATIENT
  Age: 57 Year
  Sex: Female
  Weight: 83.8 kg

DRUGS (16)
  1. LORATADINE. [Concomitant]
     Active Substance: LORATADINE
  2. DICLOFENAC [Concomitant]
     Active Substance: DICLOFENAC
  3. GABAPENTIN. [Concomitant]
     Active Substance: GABAPENTIN
  4. ETOPOSIDE (VP-16) [Suspect]
     Active Substance: ETOPOSIDE
     Dates: end: 20141212
  5. FLUTICASONE [Concomitant]
     Active Substance: FLUTICASONE\FLUTICASONE PROPIONATE
  6. OXYCODONE [Concomitant]
     Active Substance: OXYCODONE
  7. PEG-L-ASPARAGINASE [Suspect]
     Active Substance: PEGASPARGASE
     Dosage: 1950 UNIT?
     Dates: end: 20141212
  8. POLYETHYLENE GLYCOL [Concomitant]
     Active Substance: POLYETHYLENE GLYCOLS
  9. METHOTREXATE [Suspect]
     Active Substance: METHOTREXATE
     Dates: end: 20141208
  10. ONDANSETRON [Concomitant]
     Active Substance: ONDANSETRON
  11. AMOXICILLIN/CALVULANATE [Concomitant]
  12. LANSOPRAZOLE. [Concomitant]
     Active Substance: LANSOPRAZOLE
  13. CYTARABINE. [Suspect]
     Active Substance: CYTARABINE
     Dates: end: 20141212
  14. ACYCLOVIR. [Concomitant]
     Active Substance: ACYCLOVIR
  15. DAPSONE. [Concomitant]
     Active Substance: DAPSONE
  16. FLUCONAZOLE. [Concomitant]
     Active Substance: FLUCONAZOLE

REACTIONS (12)
  - Septic shock [None]
  - Pancytopenia [None]
  - Enterococcal infection [None]
  - Fatigue [None]
  - Insomnia [None]
  - Proteus test positive [None]
  - Pain [None]
  - Vomiting [None]
  - Hypotension [None]
  - Chills [None]
  - Dyspnoea [None]
  - Nausea [None]

NARRATIVE: CASE EVENT DATE: 20141217
